FAERS Safety Report 14573268 (Version 2)
Quarter: 2018Q1

REPORT INFORMATION
  Report Type: Report from Study
  Country: GB (occurrence: GB)
  Receive Date: 20180226
  Receipt Date: 20180301
  Transmission Date: 20180509
  Serious: Yes (Other)
  Sender: FDA-Public Use
  Company Number: GB-TEVA-2018-GB-861146

PATIENT
  Age: 67 Year
  Sex: Female

DRUGS (1)
  1. SULFASALAZINE. [Suspect]
     Active Substance: SULFASALAZINE
     Indication: UNDIFFERENTIATED CONNECTIVE TISSUE DISEASE
     Route: 065

REACTIONS (2)
  - Haemolysis [Unknown]
  - False negative investigation result [Unknown]
